FAERS Safety Report 6200198-9 (Version None)
Quarter: 2009Q2

REPORT INFORMATION
  Report Type: 
  Country: None (occurrence: None)
  Receive Date: 20090522
  Receipt Date: 20090513
  Transmission Date: 20091009
  Serious: Yes (Hospitalization, Other)
  Sender: FDA-Public Use
  Company Number: GB-PFIZER INC-2009204536

PATIENT
  Age: 44 Year

DRUGS (6)
  1. CHAMPIX [Suspect]
     Dosage: 1 MG, 2X/DAY
     Route: 048
     Dates: start: 20090327, end: 20090420
  2. MIRTAZAPINE [Concomitant]
     Dosage: UNK
  3. TRAZODONE HYDROCHLORIDE [Concomitant]
     Dosage: UNK
  4. METFORMIN [Concomitant]
     Dosage: UNK
  5. ACTOS [Concomitant]
     Dosage: UNK
  6. SIMVASTATIN [Concomitant]
     Dosage: UNK

REACTIONS (4)
  - AGITATION [None]
  - ANGER [None]
  - DEPRESSED MOOD [None]
  - SUICIDAL IDEATION [None]
